FAERS Safety Report 9798705 (Version 1)
Quarter: 2014Q1

REPORT INFORMATION
  Report Type: Spontaneous
  Country: US (occurrence: US)
  Receive Date: 20140106
  Receipt Date: 20140106
  Transmission Date: 20141002
  Serious: No
  Sender: FDA-Public Use
  Company Number: US-GILEAD-2010-0029864

PATIENT
  Sex: Female
  Weight: 90.72 kg

DRUGS (23)
  1. LETAIRIS [Suspect]
     Indication: PULMONARY ARTERIAL HYPERTENSION
     Route: 048
     Dates: start: 20091030
  2. ALLOPURINOL [Concomitant]
  3. SYNVISC [Concomitant]
  4. PERCOCET [Concomitant]
  5. DARVOCET-N [Concomitant]
  6. COLCHICINE [Concomitant]
  7. TEMAZEPAM [Concomitant]
  8. METHOCARBAMOL [Concomitant]
  9. HYDRALAZINE [Concomitant]
  10. GAS-X [Concomitant]
  11. GLIPIZIDE [Concomitant]
  12. TORSEMIDE [Concomitant]
  13. AMLODIPINE BESYLATE [Concomitant]
  14. GABAPENTIN [Concomitant]
  15. BENAZEPRIL [Concomitant]
  16. SIMVASTATIN [Concomitant]
  17. ASPIRIN [Concomitant]
  18. VITAMIN D [Concomitant]
  19. MULTIVITAMIN [Concomitant]
  20. PLAVIX [Concomitant]
  21. NITROGLYCERIN [Concomitant]
  22. FISH OIL [Concomitant]
  23. ISOSORBIDE [Concomitant]

REACTIONS (1)
  - Blood count abnormal [Unknown]
